FAERS Safety Report 6320341-0 (Version None)
Quarter: 2009Q3

REPORT INFORMATION
  Report Type: 
  Country: None (occurrence: None)
  Receive Date: 20090822
  Receipt Date: 20081104
  Transmission Date: 20100115
  Serious: No
  Sender: FDA-Public Use
  Company Number: US-ABBOTT-08P-163-0485515-00

PATIENT
  Sex: Male
  Weight: 98.518 kg

DRUGS (3)
  1. NIASPAN [Suspect]
     Indication: BLOOD CHOLESTEROL INCREASED
     Dates: start: 20080901
  2. NIASPAN [Suspect]
     Dates: start: 20080929
  3. NIASPAN [Suspect]
     Dates: start: 20081104

REACTIONS (2)
  - DIARRHOEA [None]
  - LOW DENSITY LIPOPROTEIN INCREASED [None]
